FAERS Safety Report 4580815-X (Version None)
Quarter: 2005Q1

REPORT INFORMATION
  Report Type: 
  Country: None (occurrence: None)
  Receive Date: 20050214
  Receipt Date: 20040607
  Transmission Date: 20050727
  Serious: No
  Sender: FDA-Public Use
  Company Number: US-GLAXOSMITHKLINE-A0513657A

PATIENT
  Age: 58 Year
  Sex: Female

DRUGS (5)
  1. LAMICTAL [Suspect]
     Indication: BIPOLAR DISORDER
     Dosage: 150MG PER DAY
     Route: 048
     Dates: start: 20040401
  2. BACTRIM [Concomitant]
  3. ESTRADIOL [Concomitant]
  4. PREVACID [Concomitant]
  5. TYLENOL [Concomitant]

REACTIONS (14)
  - EYE DISORDER [None]
  - HYPERAESTHESIA [None]
  - LACRIMATION INCREASED [None]
  - LYMPHOEDEMA [None]
  - MUSCLE SPASMS [None]
  - NAUSEA [None]
  - PAIN IN EXTREMITY [None]
  - PARAESTHESIA ORAL [None]
  - PRURITUS [None]
  - RASH [None]
  - SLEEP DISORDER [None]
  - TINNITUS [None]
  - URINARY TRACT INFECTION [None]
  - VISION BLURRED [None]
